FAERS Safety Report 10250265 (Version 1)
Quarter: 2014Q2

REPORT INFORMATION
  Report Type: Spontaneous
  Country: US (occurrence: None)
  Receive Date: 20140618
  Receipt Date: 20140618
  Transmission Date: 20141212
  Serious: Yes (Disabling)
  Sender: FDA-Public Use
  Company Number: HA14-224-AE

PATIENT
  Sex: Female

DRUGS (1)
  1. IBUPROFEN [Suspect]
     Indication: PRODUCT USED FOR UNKNOWN INDICATION
     Dosage: UNKNOWN DOSE AND THERAPY DATE

REACTIONS (5)
  - Peripheral swelling [None]
  - Peripheral swelling [None]
  - Abasia [None]
  - Muscle tightness [None]
  - Muscle spasms [None]
